FAERS Safety Report 4528118-3 (Version None)
Quarter: 2004Q4

REPORT INFORMATION
  Report Type: 
  Country: None (occurrence: None)
  Receive Date: 20041130
  Receipt Date: 20040727
  Transmission Date: 20050328
  Serious: No
  Sender: FDA-Public Use
  Company Number: WAES 0407USA02390

PATIENT
  Age: 73 Year
  Sex: Female

DRUGS (6)
  1. ZETIA [Suspect]
     Indication: BLOOD CHOLESTEROL INCREASED
     Dosage: 10 MG/DAILY/PO
     Route: 048
     Dates: start: 20040726
  2. COZAAR [Concomitant]
  3. MOTRIN [Concomitant]
  4. PEPCID [Concomitant]
  5. PREVACID [Concomitant]
  6. ZOCOR [Concomitant]

REACTIONS (2)
  - FATIGUE [None]
  - MALAISE [None]
